FAERS Safety Report 23942683 (Version 1)
Quarter: 2024Q2

REPORT INFORMATION
  Report Type: Spontaneous
  Country: CN (occurrence: CN)
  Receive Date: 20240605
  Receipt Date: 20240605
  Transmission Date: 20240715
  Serious: Yes (Hospitalization, Other)
  Sender: FDA-Public Use
  Company Number: None

PATIENT
  Age: 1 Year
  Sex: Male
  Weight: 10 kg

DRUGS (16)
  1. CYCLOPHOSPHAMIDE [Suspect]
     Active Substance: CYCLOPHOSPHAMIDE
     Indication: Retroperitoneal cancer
     Dosage: 0.416 G, ONE TIME IN ONE DAY, DILUTED WITH SODIUM CHLORIDE 250 ML (START TIME:FROM 08:00)
     Route: 041
     Dates: start: 20240507, end: 20240507
  2. CYCLOPHOSPHAMIDE [Suspect]
     Active Substance: CYCLOPHOSPHAMIDE
     Indication: Neuroblastoma
  3. CYCLOPHOSPHAMIDE [Suspect]
     Active Substance: CYCLOPHOSPHAMIDE
     Indication: Chemotherapy
  4. SODIUM CHLORIDE [Suspect]
     Active Substance: SODIUM CHLORIDE
     Indication: Medication dilution
     Dosage: 250 ML, ONE TIME IN ONE DAY,USED TO DILUTE CYCLOPHOSPHAMIDE 0.416 G
     Route: 041
     Dates: start: 20240507, end: 20240507
  5. SODIUM CHLORIDE [Suspect]
     Active Substance: SODIUM CHLORIDE
     Dosage: 200 ML,ONE TIME IN ONE DAY, USED TO DILUTE 55 MG OF ETOPOSIDE
     Route: 041
     Dates: start: 20240510, end: 20240510
  6. SODIUM CHLORIDE [Suspect]
     Active Substance: SODIUM CHLORIDE
     Dosage: 250 ML, ONE TIME IN ONE DAY, USED TO DILUTE 31.2 MG CISPLATIN
     Route: 041
     Dates: start: 20240508, end: 20240508
  7. SODIUM CHLORIDE [Suspect]
     Active Substance: SODIUM CHLORIDE
     Dosage: 20 ML, USED TO DILUTE VINCRISTINE SULFATE 0.52 MG
     Route: 042
     Dates: start: 20240507, end: 20240507
  8. ETOPOSIDE [Suspect]
     Active Substance: ETOPOSIDE
     Indication: Retroperitoneal cancer
     Dosage: 55 MG, ONE TIME IN ONE DAY,DILUTED WITH SODIUM CHLORIDE 200 ML
     Route: 041
     Dates: start: 20240510, end: 20240510
  9. ETOPOSIDE [Suspect]
     Active Substance: ETOPOSIDE
     Indication: Neuroblastoma
  10. ETOPOSIDE [Suspect]
     Active Substance: ETOPOSIDE
     Indication: Chemotherapy
  11. CISPLATIN [Suspect]
     Active Substance: CISPLATIN
     Indication: Retroperitoneal cancer
     Dosage: 31.2 MG, ONE TIME IN ONE DAY, DILUTED WITH SODIUM CHLORIDE 250 ML
     Route: 041
     Dates: start: 20240508, end: 20240508
  12. CISPLATIN [Suspect]
     Active Substance: CISPLATIN
     Indication: Neuroblastoma
  13. CISPLATIN [Suspect]
     Active Substance: CISPLATIN
     Indication: Chemotherapy
  14. VINCRISTINE SULFATE [Suspect]
     Active Substance: VINCRISTINE SULFATE
     Indication: Retroperitoneal cancer
     Dosage: 0.52 MG, DILUTED WITH SODIUM CHLORIDE 20 ML
     Route: 042
     Dates: start: 20240507, end: 20240507
  15. VINCRISTINE SULFATE [Suspect]
     Active Substance: VINCRISTINE SULFATE
     Indication: Neuroblastoma
  16. VINCRISTINE SULFATE [Suspect]
     Active Substance: VINCRISTINE SULFATE
     Indication: Chemotherapy

REACTIONS (4)
  - Haemorrhagic diathesis [Unknown]
  - Myelosuppression [Unknown]
  - Platelet count decreased [Recovering/Resolving]
  - Blood test abnormal [Unknown]

NARRATIVE: CASE EVENT DATE: 20240514
